FAERS Safety Report 6033805-4 (Version None)
Quarter: 2009Q1

REPORT INFORMATION
  Report Type: 
  Country: None (occurrence: None)
  Receive Date: 20090112
  Receipt Date: 20090105
  Transmission Date: 20090719
  Serious: Yes (Other)
  Sender: FDA-Public Use
  Company Number: US-WYE-H07531409

PATIENT
  Sex: Female
  Weight: 47.67 kg

DRUGS (11)
  1. PREMARIN [Interacting]
     Indication: DRUG USE FOR UNKNOWN INDICATION
     Dosage: UNKNOWN
     Route: 065
     Dates: start: 19700101, end: 20080501
  2. PREMARIN [Interacting]
     Dosage: UNKNOWN
     Route: 065
     Dates: start: 20080601, end: 20080601
  3. COUMADIN [Interacting]
     Indication: DRUG USE FOR UNKNOWN INDICATION
     Dosage: UNKNOWN
     Route: 065
  4. ACETAMINOPHEN W/ PROPOXYPHENE HCL [Concomitant]
     Indication: PAIN
     Dosage: AS REQUIRED
     Route: 065
  5. VITAMIN B-12 [Concomitant]
  6. IRON [Concomitant]
  7. SUCCINIC ACID [Concomitant]
  8. ASCORBIC ACID [Concomitant]
  9. FOLIC ACID [Concomitant]
  10. HUMIRA [Suspect]
     Indication: CROHN'S DISEASE
     Dosage: 40 MG/0.8 ML PEN (40 MG, 1 IN 2 WKS)
     Route: 058
     Dates: start: 20080301
  11. METOPROLOL TARTRATE [Concomitant]
     Indication: DRUG USE FOR UNKNOWN INDICATION
     Dosage: UNKNOWN
     Route: 065

REACTIONS (7)
  - ALOPECIA [None]
  - BLOOD COUNT ABNORMAL [None]
  - DRUG INTERACTION [None]
  - GROIN PAIN [None]
  - HOT FLUSH [None]
  - SLEEP DISORDER [None]
  - WEIGHT DECREASED [None]
